FAERS Safety Report 14821731 (Version 4)
Quarter: 2020Q1

REPORT INFORMATION
  Report Type: Spontaneous
  Country: US (occurrence: US)
  Receive Date: 20180427
  Receipt Date: 20200123
  Transmission Date: 20200409
  Serious: Yes (Hospitalization, Other)
  Sender: FDA-Public Use
  Company Number: US-ASTRAZENECA-2018SE53957

PATIENT
  Age: 23378 Day
  Sex: Female
  Weight: 81.6 kg

DRUGS (54)
  1. NEXIUM [Suspect]
     Active Substance: ESOMEPRAZOLE MAGNESIUM
     Route: 048
     Dates: start: 20081112
  2. ACIPHEX [Concomitant]
     Active Substance: RABEPRAZOLE SODIUM
     Route: 048
     Dates: start: 20080118
  3. WARFARIN SODIUM. [Concomitant]
     Active Substance: WARFARIN SODIUM
  4. LEVOTHYROXINE. [Concomitant]
     Active Substance: LEVOTHYROXINE
     Route: 048
  5. NORTRIPTYLINE [Concomitant]
     Active Substance: NORTRIPTYLINE
     Route: 048
  6. POTASSIUM [Concomitant]
     Active Substance: POTASSIUM
  7. KENALOG [Concomitant]
     Active Substance: TRIAMCINOLONE ACETONIDE
  8. ZYRTEC [Concomitant]
     Active Substance: CETIRIZINE HYDROCHLORIDE
  9. NEURONTIN [Concomitant]
     Active Substance: GABAPENTIN
  10. PREVACID [Suspect]
     Active Substance: LANSOPRAZOLE
     Route: 048
     Dates: start: 20071222
  11. CELEBREX [Concomitant]
     Active Substance: CELECOXIB
     Dates: start: 20081203
  12. LORTAB [Concomitant]
     Active Substance: ACETAMINOPHEN\HYDROCODONE BITARTRATE
  13. CALCIUM [Concomitant]
     Active Substance: CALCIUM
  14. KLONOPIN [Concomitant]
     Active Substance: CLONAZEPAM
  15. MEDROL [Concomitant]
     Active Substance: METHYLPREDNISOLONE
  16. PHENERGAN [Concomitant]
     Active Substance: PROMETHAZINE HYDROCHLORIDE
  17. NITROFURANTOIN. [Concomitant]
     Active Substance: NITROFURANTOIN
  18. AMBIEN [Concomitant]
     Active Substance: ZOLPIDEM TARTRATE
  19. NEXIUM 24HR [Suspect]
     Active Substance: ESOMEPRAZOLE MAGNESIUM
     Dosage: UNK
     Route: 048
  20. PRILOSEC OTC [Suspect]
     Active Substance: OMEPRAZOLE MAGNESIUM
     Dosage: UNK
     Route: 048
  21. DEXILANT [Suspect]
     Active Substance: DEXLANSOPRAZOLE
     Route: 065
  22. PREVACID [Suspect]
     Active Substance: LANSOPRAZOLE
     Dosage: UNK
     Route: 065
  23. PREVACID [Suspect]
     Active Substance: LANSOPRAZOLE
     Route: 048
  24. ACIPHEX [Concomitant]
     Active Substance: RABEPRAZOLE SODIUM
     Route: 048
     Dates: start: 20080114
  25. PROMETHAZINE [Concomitant]
     Active Substance: PROMETHAZINE HYDROCHLORIDE
     Route: 048
  26. ALENDRONATE [Concomitant]
     Active Substance: ALENDRONATE SODIUM
  27. AMOXICILLINE [Concomitant]
     Active Substance: AMOXICILLIN
     Dates: start: 20081106
  28. FOSAMAX [Concomitant]
     Active Substance: ALENDRONATE SODIUM
  29. MUCINEX [Concomitant]
     Active Substance: GUAIFENESIN
  30. CYCLOBENZAPRINE. [Concomitant]
     Active Substance: CYCLOBENZAPRINE
     Dates: start: 20071205
  31. ROPINIROLE. [Concomitant]
     Active Substance: ROPINIROLE
     Route: 048
  32. OXYCODONE ACETAMINOPHEN [Concomitant]
     Active Substance: ACETAMINOPHEN\OXYCODONE HYDROCHLORIDE
  33. ZOLPIDEM [Concomitant]
     Active Substance: ZOLPIDEM TARTRATE
  34. MIACALCIN [Concomitant]
     Active Substance: CALCITONIN SALMON
  35. CYCLOSPORIN [Concomitant]
     Active Substance: CYCLOSPORINE
  36. LIDODERM [Concomitant]
     Active Substance: LIDOCAINE
  37. NIFEDIPINE. [Concomitant]
     Active Substance: NIFEDIPINE
     Route: 048
  38. NEXIUM [Suspect]
     Active Substance: ESOMEPRAZOLE MAGNESIUM
     Route: 048
  39. PRILOSEC [Suspect]
     Active Substance: OMEPRAZOLE MAGNESIUM
     Dosage: UNK
     Route: 048
  40. PREVACID 24 HR [Suspect]
     Active Substance: LANSOPRAZOLE
     Dosage: UNK
     Route: 065
  41. SYNTHROID [Concomitant]
     Active Substance: LEVOTHYROXINE SODIUM
  42. CLONAZEPAM. [Concomitant]
     Active Substance: CLONAZEPAM
  43. KLOR-CON [Concomitant]
     Active Substance: POTASSIUM CHLORIDE
  44. DEXILANT [Suspect]
     Active Substance: DEXLANSOPRAZOLE
     Dosage: UNK
     Route: 065
  45. PROTONIX [Suspect]
     Active Substance: PANTOPRAZOLE SODIUM
     Dosage: UNK
     Route: 065
  46. ENDOCET [Concomitant]
     Active Substance: ACETAMINOPHEN\OXYCODONE HYDROCHLORIDE
     Dates: start: 20080120
  47. ACIPHEX [Concomitant]
     Active Substance: RABEPRAZOLE SODIUM
  48. BONIVA [Concomitant]
     Active Substance: IBANDRONATE SODIUM
     Route: 048
  49. CYCLOBENZAPRINE. [Concomitant]
     Active Substance: CYCLOBENZAPRINE
  50. OXYCONTIN [Concomitant]
     Active Substance: OXYCODONE HYDROCHLORIDE
     Route: 048
     Dates: start: 20081025
  51. CARAFATE [Concomitant]
     Active Substance: SUCRALFATE
  52. MORPHIN [Concomitant]
     Active Substance: MORPHINE
  53. NAPROSYN [Concomitant]
     Active Substance: NAPROXEN
  54. NAPROXEN. [Concomitant]
     Active Substance: NAPROXEN

REACTIONS (4)
  - Chronic kidney disease [Unknown]
  - Renal failure [Unknown]
  - Acute kidney injury [Recovered/Resolved]
  - Rebound acid hypersecretion [Unknown]

NARRATIVE: CASE EVENT DATE: 20100726
